FAERS Safety Report 4489893-X (Version None)
Quarter: 2004Q4

REPORT INFORMATION
  Report Type: 
  Country: None (occurrence: None)
  Receive Date: 20041026
  Receipt Date: 20041019
  Transmission Date: 20050328
  Serious: No
  Sender: FDA-Public Use
  Company Number: 2004SE05623

PATIENT
  Age: 76 Year
  Sex: Female
  Weight: 73 kg

DRUGS (4)
  1. NEXIUM [Suspect]
     Indication: GASTRODUODENITIS
     Dosage: 20 MG QD PO
     Route: 048
     Dates: start: 20040816, end: 20040827
  2. NORVASC [Concomitant]
  3. AKARIN [Concomitant]
  4. ALOPAM [Concomitant]

REACTIONS (6)
  - FACE OEDEMA [None]
  - HEADACHE [None]
  - HYPOACUSIS [None]
  - OEDEMA PERIPHERAL [None]
  - SENSORY DISTURBANCE [None]
  - VISUAL ACUITY REDUCED [None]
